FAERS Safety Report 4878608-9 (Version None)
Quarter: 2006Q1

REPORT INFORMATION
  Report Type: 
  Country: None (occurrence: None)
  Receive Date: 20060110
  Receipt Date: 20060110
  Transmission Date: 20060701
  Serious: Yes (Hospitalization)
  Sender: FDA-Public Use
  Company Number: None

PATIENT
  Age: 31 Year
  Sex: Female
  Weight: 52.1637 kg

DRUGS (1)
  1. DEPO-PROVERA [Suspect]

REACTIONS (9)
  - DRUG EXPOSURE BEFORE PREGNANCY [None]
  - DYSPAREUNIA [None]
  - ENDOMETRIOSIS [None]
  - FATIGUE [None]
  - HAEMORRHAGE [None]
  - MENOMETRORRHAGIA [None]
  - PREGNANCY [None]
  - SIMILAR REACTION ON PREVIOUS EXPOSURE TO DRUG [None]
  - VAGINAL DISCHARGE [None]
